FAERS Safety Report 6466975-4 (Version None)
Quarter: 2009Q4

REPORT INFORMATION
  Report Type: 
  Country: None (occurrence: None)
  Receive Date: 20091202
  Receipt Date: 20091119
  Transmission Date: 20100525
  Serious: Yes (Other)
  Sender: FDA-Public Use
  Company Number: US-PFIZER INC-2009300339

PATIENT
  Age: 62 Year
  Sex: Female

DRUGS (1)
  1. BACITRACIN AND BACITRACIN ZINC [Suspect]

REACTIONS (1)
  - CARDIAC ARREST [None]
